FAERS Safety Report 24422894 (Version 1)
Quarter: 2024Q4

REPORT INFORMATION
  Report Type: Report from Study
  Country: US (occurrence: US)
  Receive Date: 20241010
  Receipt Date: 20241010
  Transmission Date: 20250114
  Serious: Yes (Hospitalization)
  Sender: TAIHO ONCOLOGY INC
  Company Number: US-TAIHOP-2024-009571

PATIENT
  Age: 43 Year
  Sex: Female
  Weight: 83.46 kg

DRUGS (1)
  1. INQOVI [Suspect]
     Active Substance: CEDAZURIDINE\DECITABINE
     Indication: Myelodysplastic syndrome
     Dosage: 135 MG (35 MG DECITABINE AND 100 MG CEDAZURIDINE), QD (DAYS 1-5) IN A 28 DAYS CYCLE; CYCLE 3
     Route: 048
     Dates: start: 202408

REACTIONS (2)
  - Renal failure [Unknown]
  - Graft versus host disease [Unknown]
